FAERS Safety Report 13573092 (Version 1)
Quarter: 2017Q2

REPORT INFORMATION
  Report Type: Spontaneous
  Country: HR (occurrence: HR)
  Receive Date: 20170523
  Receipt Date: 20170523
  Transmission Date: 20170830
  Serious: Yes (Hospitalization, Other)
  Sender: FDA-Public Use
  Company Number: HR-TEVA-768907ISR

PATIENT
  Age: 47 Year
  Sex: Female

DRUGS (3)
  1. HELEX [Suspect]
     Active Substance: ALPRAZOLAM
     Route: 048
     Dates: start: 201703, end: 201703
  2. SANVAL [Suspect]
     Active Substance: ZOLPIDEM TARTRATE
     Route: 048
     Dates: start: 201703, end: 201703
  3. LOQUEN XR [Suspect]
     Active Substance: QUETIAPINE
     Route: 048
     Dates: start: 201703, end: 201703

REACTIONS (4)
  - Suicide attempt [Unknown]
  - Coma [Unknown]
  - Respiratory depression [Unknown]
  - Intentional overdose [Unknown]

NARRATIVE: CASE EVENT DATE: 201703
